FAERS Safety Report 5956390-1 (Version None)
Quarter: 2008Q4

REPORT INFORMATION
  Report Type: 
  Country: None (occurrence: None)
  Receive Date: 20081112
  Receipt Date: 20081103
  Transmission Date: 20090506
  Serious: Yes (Hospitalization)
  Sender: FDA-Public Use
  Company Number: 2008SP020193

PATIENT
  Age: 60 Year
  Sex: Male
  Weight: 94.3482 kg

DRUGS (13)
  1. PEG-INTRON [Suspect]
     Indication: HEPATITIS C
     Dosage: 0.5 ML; QW
     Dates: start: 20080711
  2. REBETOL [Suspect]
     Indication: HEPATITIS C
     Dosage: 600 MG; BID; PO
     Route: 048
     Dates: start: 20080711
  3. OXYCODONE HCL [Concomitant]
  4. ASPIRIN [Concomitant]
  5. ENALAPRIL MALEATE [Concomitant]
  6. LASIX [Concomitant]
  7. CLONAZEPAM [Concomitant]
  8. KLOR-CON [Concomitant]
  9. LACTULOSE [Concomitant]
  10. OXYCODONE HCL [Concomitant]
  11. PREVACID [Concomitant]
  12. PROMETHAZINE [Concomitant]
  13. SPIRONOLACTONE [Concomitant]

REACTIONS (8)
  - ABDOMINAL PAIN UPPER [None]
  - AMMONIA INCREASED [None]
  - ANAEMIA [None]
  - BURNING SENSATION [None]
  - OEDEMA PERIPHERAL [None]
  - PAIN [None]
  - PANCYTOPENIA [None]
  - PYREXIA [None]
